FAERS Safety Report 10205983 (Version 1)
Quarter: 2014Q2

REPORT INFORMATION
  Report Type: Spontaneous
  Country: US (occurrence: None)
  Receive Date: 20140527
  Receipt Date: 20140527
  Transmission Date: 20141212
  Serious: Yes (Hospitalization)
  Sender: FDA-Public Use
  Company Number: None

PATIENT
  Age: 65 Year
  Sex: Male

DRUGS (6)
  1. HEPARIN [Suspect]
     Indication: THROMBOSIS
     Dosage: 2000 UNITS/HR, EVERY 1 HOUR, IV?
     Route: 042
     Dates: start: 20120118, end: 20120119
  2. BISACODYL [Concomitant]
  3. CEFEPIME [Concomitant]
  4. HYDROMORPHONE [Concomitant]
  5. MORPHINE [Concomitant]
  6. VANCOMYCIN [Concomitant]

REACTIONS (4)
  - Hypotension [None]
  - Pulmonary embolism [None]
  - Haemoglobin decreased [None]
  - Retroperitoneal haemorrhage [None]
